FAERS Safety Report 21225900 (Version 5)
Quarter: 2022Q3

REPORT INFORMATION
  Report Type: Spontaneous
  Country: US (occurrence: US)
  Receive Date: 20220818
  Receipt Date: 20220910
  Transmission Date: 20221026
  Serious: No
  Sender: FDA-Public Use
  Company Number: US-UNITED THERAPEUTICS-UNT-2022-016013

PATIENT
  Sex: Female
  Weight: 95.238 kg

DRUGS (5)
  1. REMODULIN [Suspect]
     Active Substance: TREPROSTINIL
     Indication: Pulmonary arterial hypertension
     Dosage: UNK, CONTINUING
     Route: 058
     Dates: start: 20220531
  2. REMODULIN [Suspect]
     Active Substance: TREPROSTINIL
     Dosage: 0.0507 ?G/KG (PRE-FILLED WITH 2.6 ML PER CASSETTE; PUMP RATE OF 27 MCL), CONTINUING
     Route: 058
     Dates: start: 2022
  3. REMODULIN [Suspect]
     Active Substance: TREPROSTINIL
     Dosage: UNK, CONTINUING
     Route: 058
     Dates: start: 2022
  4. OPSUMIT [Concomitant]
     Active Substance: MACITENTAN
     Indication: Pulmonary arterial hypertension
     Dosage: 10 MG, QD
     Route: 048
     Dates: start: 202111
  5. SILDENAFIL [Concomitant]
     Active Substance: SILDENAFIL
     Indication: Product used for unknown indication
     Dosage: UNK
     Route: 065

REACTIONS (20)
  - Infusion site haemorrhage [Recovered/Resolved]
  - Infusion site rash [Unknown]
  - Rash [Unknown]
  - Rash erythematous [Unknown]
  - Rash papular [Unknown]
  - Infusion site pruritus [Unknown]
  - Pain in extremity [Unknown]
  - Arthralgia [Unknown]
  - Infusion site erythema [Unknown]
  - Diarrhoea [Not Recovered/Not Resolved]
  - Headache [Unknown]
  - Infusion site pain [Unknown]
  - Infusion site swelling [Unknown]
  - Joint swelling [Unknown]
  - Rash pruritic [Recovered/Resolved]
  - Infusion site irritation [Unknown]
  - Dermatitis contact [Recovered/Resolved]
  - Nerve injury [Unknown]
  - Product quality issue [Recovered/Resolved]
  - Device dislocation [Recovered/Resolved]

NARRATIVE: CASE EVENT DATE: 20220101
